FAERS Safety Report 18378522 (Version 2)
Quarter: 2025Q3

REPORT INFORMATION
  Report Type: Spontaneous
  Country: US (occurrence: US)
  Receive Date: 20201013
  Receipt Date: 20250804
  Transmission Date: 20251021
  Serious: Yes (Hospitalization, Disabling, Other)
  Sender: PURDUE
  Company Number: US-PURDUE-USA-2020-0170217

PATIENT
  Age: 4 Year
  Sex: Male

DRUGS (3)
  1. OXYCONTIN [Suspect]
     Active Substance: OXYCODONE HYDROCHLORIDE
     Indication: Product used for unknown indication
     Route: 064
  2. ACETAMINOPHEN\OXYCODONE HYDROCHLORIDE\OXYCODONE TEREPHTHALATE [Suspect]
     Active Substance: ACETAMINOPHEN\OXYCODONE HYDROCHLORIDE\OXYCODONE TEREPHTHALATE
     Indication: Product used for unknown indication
     Route: 064
  3. CODEINE [Suspect]
     Active Substance: CODEINE
     Indication: Product used for unknown indication
     Route: 064

REACTIONS (12)
  - Developmental delay [Unknown]
  - Learning disability [Unknown]
  - Foetal exposure during pregnancy [Unknown]
  - Drug withdrawal syndrome neonatal [Unknown]
  - Attention deficit hyperactivity disorder [Unknown]
  - Oppositional defiant disorder [Unknown]
  - Asthma [Unknown]
  - Injury [Unknown]
  - Affective disorder [Unknown]
  - Emotional distress [Unknown]
  - Psychomotor hyperactivity [Unknown]
  - Anger [Unknown]

NARRATIVE: CASE EVENT DATE: 20130508
